FAERS Safety Report 8762846 (Version 1)
Quarter: 2012Q4

REPORT INFORMATION
  Report Type: 
  Country: US (occurrence: US)
  Receive Date: 20120829
  Receipt Date: 20120829
  Transmission Date: 20130627
  Serious: No
  Sender: FDA-Public Use
  Company Number: US-PFIZER INC-2012208622

PATIENT
  Age: 65 Year
  Sex: Male
  Weight: 81.63 kg

DRUGS (4)
  1. DILANTIN [Suspect]
     Indication: CONVULSION
     Dosage: 400 mg, in a day
     Route: 048
  2. DILANTIN [Suspect]
     Dosage: 100 mg daily
     Route: 048
  3. DILANTIN [Suspect]
     Dosage: 400 mg daily
     Route: 048
  4. DILANTIN [Suspect]
     Dosage: UNK

REACTIONS (4)
  - Oedema peripheral [Unknown]
  - Fluid retention [Unknown]
  - Sensation of heaviness [Unknown]
  - Anticonvulsant drug level increased [Unknown]
